FAERS Safety Report 15456296 (Version 2)
Quarter: 2018Q4

REPORT INFORMATION
  Report Type: Not Available
  Country: FR (occurrence: FR)
  Receive Date: 20181002
  Receipt Date: 20181010
  Transmission Date: 20190204
  Serious: Yes (Death, Hospitalization)
  Sender: FDA-Public Use
  Company Number: FR-CELGENEUS-FRA-20180906995

PATIENT
  Sex: Female
  Weight: 58 kg

DRUGS (6)
  1. ZARZIO [Concomitant]
     Active Substance: FILGRASTIM
     Indication: PRODUCT USED FOR UNKNOWN INDICATION
     Route: 065
  2. IXAZOMIB [Concomitant]
     Active Substance: IXAZOMIB
     Indication: PLASMA CELL MYELOMA
     Route: 065
     Dates: start: 20180606
  3. ATOVAQUONE. [Concomitant]
     Active Substance: ATOVAQUONE
     Indication: PRODUCT USED FOR UNKNOWN INDICATION
     Route: 048
  4. REVLIMID [Suspect]
     Active Substance: LENALIDOMIDE
     Indication: PLASMA CELL MYELOMA
     Route: 048
     Dates: start: 20180606
  5. ZELITREX [Concomitant]
     Active Substance: VALACYCLOVIR HYDROCHLORIDE
     Indication: PROPHYLAXIS
     Route: 048
  6. DEXAMETHASONE. [Concomitant]
     Active Substance: DEXAMETHASONE
     Indication: PLASMA CELL MYELOMA
     Route: 065

REACTIONS (14)
  - Mucosal discolouration [Unknown]
  - Cough [Unknown]
  - Pyrexia [Recovered/Resolved]
  - Ecchymosis [Unknown]
  - Bicytopenia [Unknown]
  - Fungal infection [Unknown]
  - Dry mouth [Unknown]
  - Plasmacytoma [Unknown]
  - General physical health deterioration [Fatal]
  - Weight decreased [Unknown]
  - Dyspnoea [Unknown]
  - Lung disorder [Recovered/Resolved]
  - Mouth haemorrhage [Unknown]
  - Petechiae [Unknown]

NARRATIVE: CASE EVENT DATE: 20180703
